FAERS Safety Report 15668281 (Version 2)
Quarter: 2018Q4

REPORT INFORMATION
  Report Type: Report from Study
  Country: FR (occurrence: FR)
  Receive Date: 20181129
  Receipt Date: 20181204
  Transmission Date: 20190205
  Serious: Yes (Hospitalization)
  Sender: FDA-Public Use
  Company Number: FR-ROCHE-2218669

PATIENT
  Age: 62 Year
  Sex: Female

DRUGS (4)
  1. CISPLATIN. [Suspect]
     Active Substance: CISPLATIN
     Indication: ANAL SQUAMOUS CELL CARCINOMA
     Dosage: DATE OF MOST RECENT DOSE: 30/OCT/2018 (65 MG)
     Route: 065
     Dates: start: 20180817
  2. ATEZOLIZUMAB. [Suspect]
     Active Substance: ATEZOLIZUMAB
     Indication: ANAL SQUAMOUS CELL CARCINOMA
     Dosage: DATE OF MOST RECENT DOSE: 30/OCT/2018 (798 MG)
     Route: 065
     Dates: start: 20180817
  3. DOCETAXEL. [Suspect]
     Active Substance: DOCETAXEL
     Indication: ANAL SQUAMOUS CELL CARCINOMA
     Dosage: DATE OF MOST RECENT DOSE: 30/OCT/2018 (66 MG)
     Route: 065
     Dates: start: 20180817
  4. 5-FU [Suspect]
     Active Substance: FLUOROURACIL
     Indication: ANAL SQUAMOUS CELL CARCINOMA
     Dosage: DATE OF MOST RECENT DOSE: 30/OCT/2018 (3345 MG)
     Route: 065
     Dates: start: 20180817

REACTIONS (1)
  - Proctitis [Recovered/Resolved]

NARRATIVE: CASE EVENT DATE: 20181109
